FAERS Safety Report 5294997-8 (Version None)
Quarter: 2007Q2

REPORT INFORMATION
  Report Type: 
  Country: None (occurrence: None)
  Receive Date: 20070412
  Receipt Date: 20070402
  Transmission Date: 20071010
  Serious: Yes (Hospitalization, Other)
  Sender: FDA-Public Use
  Company Number: HQWYE968608AUG03

PATIENT
  Sex: Female
  Weight: 74 kg

DRUGS (1)
  1. PREMPRO [Suspect]
     Dosage: 0.625/2.5 - 0.625/5.0 MG
     Route: 048
     Dates: start: 19971101, end: 20000801

REACTIONS (2)
  - BREAST CANCER METASTATIC [None]
  - PULMONARY EMBOLISM [None]
